FAERS Safety Report 21937106 (Version 1)
Quarter: 2023Q1

REPORT INFORMATION
  Report Type: Spontaneous
  Country: US (occurrence: None)
  Receive Date: 20230131
  Receipt Date: 20230131
  Transmission Date: 20230418
  Serious: No
  Sender: FDA-Public Use
  Company Number: None

PATIENT
  Age: 20 Year
  Sex: Male
  Weight: 112.5 kg

DRUGS (2)
  1. METHYLPHENIDATE HYDROCHLORIDE [Suspect]
     Active Substance: METHYLPHENIDATE HYDROCHLORIDE
  2. DULOXETINE [Concomitant]
     Active Substance: DULOXETINE

REACTIONS (5)
  - Product substitution issue [None]
  - Drug ineffective [None]
  - Emotional distress [None]
  - Product quality issue [None]
  - Therapeutic response changed [None]

NARRATIVE: CASE EVENT DATE: 20230124
